FAERS Safety Report 8261703-4 (Version None)
Quarter: 2012Q2

REPORT INFORMATION
  Report Type: 
  Country: None (occurrence: None)
  Receive Date: 20120402
  Receipt Date: 20120328
  Transmission Date: 20120825
  Serious: Yes (Life-Threatening, Hospitalization, Disabling)
  Sender: FDA-Public Use
  Company Number: 2012PV000018

PATIENT
  Age: 21 Year
  Sex: Male
  Weight: 120 kg

DRUGS (2)
  1. TASIGNA [Concomitant]
  2. DEPOCYT [Suspect]
     Indication: ACUTE LYMPHOCYTIC LEUKAEMIA
     Dosage: 50 MG; INTH
     Route: 037
     Dates: start: 20090225, end: 20090617

REACTIONS (2)
  - BRAIN OEDEMA [None]
  - ARACHNOIDITIS [None]
